FAERS Safety Report 16583509 (Version 1)
Quarter: 2019Q3

REPORT INFORMATION
  Report Type: Spontaneous
  Country: DE (occurrence: DE)
  Receive Date: 20190717
  Receipt Date: 20190717
  Transmission Date: 20191004
  Serious: Yes (Life-Threatening, Hospitalization)
  Sender: FDA-Public Use
  Company Number: DE-TEVA-2019-DE-1077966

PATIENT
  Age: 75 Year
  Sex: Female

DRUGS (15)
  1. BICANORM [Concomitant]
     Active Substance: SODIUM BICARBONATE
     Dosage: NK MG, 1-0-1-0
  2. CALCET [Concomitant]
     Dosage: 950 MG, 1-1-1-0
  3. PHENPROCOUMON [Concomitant]
     Active Substance: PHENPROCOUMON
     Dosage: 3 MG, ACCORDING TO INR
  4. TORASEMID [Concomitant]
     Active Substance: TORSEMIDE
     Dosage: 50 MG, ON HD DAYS OFF; 1-0-0-0
  5. LEVOTHYROXINE SODIUM. [Concomitant]
     Active Substance: LEVOTHYROXINE SODIUM
     Dosage: 100 MICROGRAM, 1-0-0-0
  6. MOXONIDIN [Concomitant]
     Active Substance: MOXONIDINE
     Dosage: 0.3 MG, 1-0-1-0
  7. RAMIPRIL. [Suspect]
     Active Substance: RAMIPRIL
     Dosage: 10 MG, 1-0-0-0
     Route: 065
  8. SIMVASTATIN. [Concomitant]
     Active Substance: SIMVASTATIN
     Dosage: 20 MG, 0-0-1-0
  9. FERRLECIT 62,5MG [Concomitant]
     Dosage: 62.5 MG, TUESDAY
  10. BISOPROLOL [Suspect]
     Active Substance: BISOPROLOL
     Dosage: 5 MG, 1-0-0-0
     Route: 065
  11. AMLODIPIN [Suspect]
     Active Substance: AMLODIPINE BESYLATE
     Dosage: 10 MG, 1-0-0-0
     Route: 065
  12. EBRANTIL 30MG [Suspect]
     Active Substance: URAPIDIL
     Dosage: 30 MG, 1-0-1-0
  13. LANTUS [Concomitant]
     Active Substance: INSULIN GLARGINE
     Dosage: 10 IE, 1-0-0-0
  14. CLOPIDOGREL [Concomitant]
     Active Substance: CLOPIDOGREL BISULFATE
     Dosage: 75 MG, 0-1-0-0
  15. DEKRISTOL [Concomitant]
     Active Substance: CHOLECALCIFEROL
     Dosage: 20000 IE, 1. UND 3. DI

REACTIONS (2)
  - Bradycardia [Recovered/Resolved]
  - Arrhythmia [Recovered/Resolved]
